FAERS Safety Report 15080289 (Version 3)
Quarter: 2018Q3

REPORT INFORMATION
  Report Type: Spontaneous
  Country: DE (occurrence: DE)
  Receive Date: 20180628
  Receipt Date: 20180820
  Transmission Date: 20181010
  Serious: Yes (Hospitalization)
  Sender: FDA-Public Use
  Company Number: DE-TEVA-2018-DE-912884

PATIENT
  Age: 79 Year
  Sex: Male

DRUGS (4)
  1. TELMISARTAN. [Concomitant]
     Active Substance: TELMISARTAN
     Indication: HYPERTENSION
     Dosage: 80 MILLIGRAM DAILY; DAILY DOSE: 80 MG MILLGRAM(S) EVERY DAYS
     Route: 048
  2. BISOPROLOL [Concomitant]
     Active Substance: BISOPROLOL
     Indication: HYPERTENSION
     Dosage: 5 MILLIGRAM DAILY; DAILY DOSE: 5 MG MILLGRAM(S) EVERY DAYS
     Route: 048
  3. ASPIRIN. [Concomitant]
     Active Substance: ASPIRIN
     Indication: CEREBROVASCULAR ACCIDENT
     Dosage: 100 MILLIGRAM DAILY; DAILY DOSE: 100 MG MILLGRAM(S) EVERY DAYS
     Route: 048
  4. ACICLOVIR [Suspect]
     Active Substance: ACYCLOVIR
     Indication: ENCEPHALITIS
     Route: 042

REACTIONS (4)
  - Organic brain syndrome [Not Recovered/Not Resolved]
  - Acute kidney injury [Unknown]
  - Organic brain syndrome [Not Recovered/Not Resolved]
  - Acute hepatic failure [Unknown]

NARRATIVE: CASE EVENT DATE: 20171201
